FAERS Safety Report 7692187 (Version 5)
Quarter: 2013Q2

REPORT INFORMATION
  Report Type: Spontaneous
  Country: US (occurrence: US)
  Receive Date: 20101204
  Receipt Date: 20130509
  Transmission Date: 20140414
  Serious: Yes (Other)
  Sender: FDA-Public Use
  Company Number: US-BAYER-201028987NA

PATIENT
  Age: 26 Year
  Sex: Female
  Weight: 58.96 kg

DRUGS (37)
  1. YAZ [Suspect]
     Indication: ORAL CONTRACEPTION
     Dosage: UNK UNK, QD
     Dates: start: 2001, end: 200804
  2. YASMIN [Suspect]
     Indication: ORAL CONTRACEPTION
     Dosage: UNK UNK, QD
     Dates: start: 2001, end: 200804
  3. OCELLA [Suspect]
     Indication: ORAL CONTRACEPTION
     Dosage: UNK UNK, QD
     Dates: start: 2001, end: 200804
  4. MOTRIN [Concomitant]
     Indication: PAIN
     Dosage: 600 MG, UNK
     Route: 048
     Dates: start: 20080309
  5. AMITRIPTYLIN [Concomitant]
     Indication: ABDOMINAL PAIN UPPER
     Dosage: UNK
     Dates: start: 200712
  6. PRILOSEC [Concomitant]
     Indication: ABDOMINAL PAIN UPPER
     Dosage: UNK
     Dates: start: 200712
  7. DIFLUCAN [Concomitant]
     Dosage: 150 MG, QD
     Route: 048
     Dates: start: 20071206
  8. LIBRAX [Concomitant]
     Dosage: 2.5 MG, QID
     Route: 048
     Dates: start: 20071206
  9. PROMETHAZINE [Concomitant]
     Indication: PROPHYLAXIS OF NAUSEA AND VOMITING
     Dosage: 12.5 MG, PRN
     Route: 048
     Dates: start: 20080115, end: 20080116
  10. PHAZYME [Concomitant]
     Indication: FLATULENCE
     Dosage: UNK
     Dates: start: 20080115
  11. EMETROL [Concomitant]
     Indication: PROPHYLAXIS OF NAUSEA AND VOMITING
     Dosage: UNK
     Dates: start: 20080115
  12. FLUCONAZOLE [Concomitant]
     Dosage: 150 MG, UNK
     Route: 048
     Dates: start: 200801, end: 200801
  13. CIPRO,CIPRO [Concomitant]
     Indication: URINARY TRACT INFECTION
     Dosage: 500 MG, QD
     Route: 048
     Dates: start: 20080118, end: 20080128
  14. FLAGYL [Concomitant]
     Indication: INFECTION PROPHYLAXIS
     Dosage: 500 MG, TID
     Dates: start: 20080118, end: 20080128
  15. KEFLEX [Concomitant]
     Indication: INFECTION
     Dosage: 250 MG, UNK
     Route: 048
     Dates: start: 20080120
  16. CLINDAMYCIN [Concomitant]
     Indication: INFECTION
     Dosage: 300 MG, UNK
     Route: 048
     Dates: start: 20080121, end: 20080128
  17. DICLOFENAC [Concomitant]
     Indication: ARTHRALGIA
     Dosage: UNK UNK, PRN
     Route: 061
     Dates: start: 20080308
  18. NAPROXEN [Concomitant]
     Dosage: 500 MG, UNK
     Route: 048
     Dates: start: 20071227
  19. HYDROCODONE W/APAP [Concomitant]
     Indication: BACK PAIN
     Dosage: UNK
     Route: 048
     Dates: start: 200712, end: 2009
  20. HYDROCODONE W/APAP [Concomitant]
     Indication: MUSCULOSKELETAL PAIN
  21. AMBIEN [Concomitant]
     Indication: INSOMNIA
     Dosage: 10 MG, UNK
     Dates: start: 2003, end: 2007
  22. AMBIEN [Concomitant]
     Indication: INSOMNIA
     Dosage: 10 MG, UNK
     Dates: start: 20071219, end: 2007
  23. AMBIEN [Concomitant]
     Indication: INSOMNIA
     Dosage: 10 MG, UNK
     Dates: start: 20080118
  24. ASPIRIN [Concomitant]
     Dosage: 325 MG, QD
     Dates: start: 20080308
  25. MULTIVITAMIN [Concomitant]
     Dosage: UNK UNK, QD
     Route: 048
     Dates: start: 20080308
  26. ALPRAZOLAM [Concomitant]
     Indication: ANXIETY
     Dosage: 0.5 MG, UNK
     Route: 048
     Dates: start: 20080318
  27. MOBIC [Concomitant]
     Indication: PAIN
     Dosage: 15 MG, UNK
     Route: 048
     Dates: start: 20080411
  28. CYCLOBENZAPRINE [Concomitant]
     Indication: MUSCLE RELAXANT THERAPY
     Dosage: 10 MG, UNK
     Route: 048
     Dates: start: 20080411
  29. FAMOTIDINE [Concomitant]
  30. KETOROLAC [Concomitant]
  31. ONDANSETRON [Concomitant]
  32. DICYCLOMINE [Concomitant]
  33. I.V. SOLUTIONS [Concomitant]
  34. PYRIDIUM [Concomitant]
     Indication: URINARY TRACT INFECTION
  35. WELLBUTRIN SR [Concomitant]
  36. VALIUM [Concomitant]
     Indication: ANXIETY
  37. PRENATAL VITAMINS [Concomitant]

REACTIONS (21)
  - Deep vein thrombosis [None]
  - Injury [None]
  - Depression [None]
  - Pain in extremity [None]
  - Musculoskeletal pain [None]
  - Tension headache [None]
  - Hypoaesthesia [None]
  - Oedema peripheral [None]
  - Paraesthesia [None]
  - Vein disorder [None]
  - Ligament sprain [None]
  - Skin discolouration [None]
  - Livedo reticularis [None]
  - Peripheral coldness [None]
  - Musculoskeletal discomfort [None]
  - Muscle spasms [None]
  - Phlebitis [None]
  - Cellulitis [None]
  - Anxiety [None]
  - Mood altered [None]
  - Alopecia [None]
